FAERS Safety Report 4681259-2 (Version None)
Quarter: 2005Q2

REPORT INFORMATION
  Report Type: 
  Country: None (occurrence: None)
  Receive Date: 20050603
  Receipt Date: 20050519
  Transmission Date: 20051028
  Serious: Yes (Other)
  Sender: FDA-Public Use
  Company Number: US-JNJFOC-20050600264

PATIENT
  Sex: Female
  Weight: 107.05 kg

DRUGS (4)
  1. MOTRIN [Suspect]
     Indication: BACK PAIN
     Route: 049
  2. ALL OTHER THERAPEUTIC PRODUCTS [Concomitant]
     Route: 049
  3. PRILOSEC [Concomitant]
     Route: 049
  4. TRAZODONE [Concomitant]
     Route: 049

REACTIONS (4)
  - ABDOMINAL PAIN UPPER [None]
  - DRUG INEFFECTIVE [None]
  - GASTRITIS [None]
  - OESOPHAGITIS [None]
